FAERS Safety Report 21035216 (Version 1)
Quarter: 2022Q3

REPORT INFORMATION
  Report Type: Spontaneous
  Country: CN (occurrence: None)
  Receive Date: 20220701
  Receipt Date: 20220701
  Transmission Date: 20221027
  Serious: Yes (Other)
  Sender: FDA-Public Use
  Company Number: 2022A235590

PATIENT
  Age: 37 Year
  Sex: Male
  Weight: 107 kg

DRUGS (6)
  1. TICAGRELOR [Suspect]
     Active Substance: TICAGRELOR
     Indication: Platelet aggregation inhibition
     Route: 048
     Dates: start: 20220601, end: 20220607
  2. NICORANDIL [Concomitant]
     Active Substance: NICORANDIL
     Indication: Cardiovascular disorder
     Route: 048
     Dates: start: 20220601, end: 20220607
  3. ROSUVASTATIN CALCIUM [Concomitant]
     Active Substance: ROSUVASTATIN CALCIUM
     Indication: Dyslipidaemia
     Dosage: 10.00 UNITS, ONCE EVERY ONE DAY
     Route: 048
     Dates: start: 20220601, end: 20220607
  4. ROSUVASTATIN CALCIUM [Concomitant]
     Active Substance: ROSUVASTATIN CALCIUM
     Indication: Arteriosclerosis
     Dosage: 10.00 UNITS, ONCE EVERY ONE DAY
     Route: 048
     Dates: start: 20220601, end: 20220607
  5. METOPROLOL TARTRATE [Concomitant]
     Active Substance: METOPROLOL TARTRATE
     Indication: Heart rate abnormal
     Dosage: 25.00 UNITS, TWICE EVERY ONE DAY
     Route: 048
     Dates: start: 20220601, end: 20220607
  6. ASPIRIN [Concomitant]
     Active Substance: ASPIRIN
     Indication: Platelet aggregation inhibition
     Route: 048
     Dates: start: 20220601, end: 20220607

REACTIONS (2)
  - Asphyxia [Recovering/Resolving]
  - Chest discomfort [Recovering/Resolving]

NARRATIVE: CASE EVENT DATE: 20220604
